FAERS Safety Report 16759869 (Version 4)
Quarter: 2022Q1

REPORT INFORMATION
  Report Type: Spontaneous
  Country: IE (occurrence: IE)
  Receive Date: 20190830
  Receipt Date: 20220310
  Transmission Date: 20220423
  Serious: Yes (Hospitalization, Other)
  Sender: FDA-Public Use
  Company Number: None

PATIENT
  Age: 67 Year
  Sex: Female

DRUGS (11)
  1. LYRICA [Suspect]
     Active Substance: PREGABALIN
     Indication: Herpes zoster
     Dosage: 50 MG, 2X/DAY, (FOR A FEW DAYS)
     Route: 048
     Dates: start: 20171019, end: 20190806
  2. LYRICA [Suspect]
     Active Substance: PREGABALIN
     Dosage: 50 MG, 1X/DAY, (REDUCED DOSE TO 50MG 1X/DAY)
     Route: 048
     Dates: start: 20171113
  3. LYRICA [Suspect]
     Active Substance: PREGABALIN
     Dosage: 50 MG, UNK(ON ALTERNATE DAYS)
     Route: 048
     Dates: start: 20190618
  4. LYRICA [Suspect]
     Active Substance: PREGABALIN
     Dosage: 25 MG, ALTERNATE DAY (THEN REDUCED DOSE TAPERING DOWN TO 25MG EVERY OTHER DAY)
     Route: 048
     Dates: start: 20190716, end: 20190806
  5. DIAZEPAM [Concomitant]
     Active Substance: DIAZEPAM
     Indication: Post-traumatic stress disorder
     Dosage: MANE - LONG TERM
  6. BENDROFLUMETHIAZIDE\POTASSIUM CHLORIDE [Concomitant]
     Active Substance: BENDROFLUMETHIAZIDE\POTASSIUM CHLORIDE
     Dosage: 2.5 MG, DAILY
     Route: 048
     Dates: start: 201303
  7. VENLAFAXINE HYDROCHLORIDE [Concomitant]
     Active Substance: VENLAFAXINE HYDROCHLORIDE
     Dosage: 75 MG, 1X/DAY
     Route: 048
     Dates: start: 200903
  8. NEO-CYTAMEN [Concomitant]
     Dosage: 1.02 MG, EVERY 3 MONTHS
     Route: 030
  9. IRON [Concomitant]
     Active Substance: IRON
     Dosage: UNK UNK, 1X/DAY
     Route: 048
     Dates: start: 201907
  10. LERCANIDIPINE [Concomitant]
     Active Substance: LERCANIDIPINE
     Dosage: 10 MG, 1X/DAY
     Route: 048
     Dates: start: 201906
  11. ANXICALM [DIAZEPAM] [Concomitant]
     Dosage: 5 MG, UNK(PRN MAXIMUM TDS/24 HOURS)
     Route: 048
     Dates: start: 20140526

REACTIONS (27)
  - Head discomfort [Not Recovered/Not Resolved]
  - Amnesia [Not Recovered/Not Resolved]
  - Renal impairment [Not Recovered/Not Resolved]
  - Drug dependence [Not Recovered/Not Resolved]
  - Nausea [Not Recovered/Not Resolved]
  - Hiccups [Not Recovered/Not Resolved]
  - Blood pressure increased [Not Recovered/Not Resolved]
  - Quality of life decreased [Not Recovered/Not Resolved]
  - Dizziness [Not Recovered/Not Resolved]
  - Diarrhoea [Not Recovered/Not Resolved]
  - Nightmare [Not Recovered/Not Resolved]
  - Fear [Not Recovered/Not Resolved]
  - Agoraphobia [Not Recovered/Not Resolved]
  - Illusion [Not Recovered/Not Resolved]
  - Social avoidant behaviour [Not Recovered/Not Resolved]
  - Tremor [Not Recovered/Not Resolved]
  - Sleep disorder [Not Recovered/Not Resolved]
  - Affective disorder [Not Recovered/Not Resolved]
  - Nervousness [Not Recovered/Not Resolved]
  - Agitation [Not Recovered/Not Resolved]
  - Suicidal ideation [Not Recovered/Not Resolved]
  - Psychiatric symptom [Not Recovered/Not Resolved]
  - Anxiety [Not Recovered/Not Resolved]
  - Night sweats [Not Recovered/Not Resolved]
  - Panic attack [Not Recovered/Not Resolved]
  - Blood glucose increased [Not Recovered/Not Resolved]
  - Withdrawal syndrome [Not Recovered/Not Resolved]

NARRATIVE: CASE EVENT DATE: 20171001
